FAERS Safety Report 9168903 (Version 3)
Quarter: 2014Q1

REPORT INFORMATION
  Report Type: Spontaneous
  Country: US (occurrence: None)
  Receive Date: 20130308
  Receipt Date: 20140129
  Transmission Date: 20141002
  Serious: Yes (Other)
  Sender: FDA-Public Use
  Company Number: JPI-P-030112

PATIENT
  Age: 30 Year
  Sex: Female

DRUGS (4)
  1. XYREM (500 MILLIGRAM/MILLILITERS, SOLUTION) (SODIUM OXYBATE) [Suspect]
     Indication: NARCOLEPSY
     Route: 048
     Dates: start: 20090319
  2. BUDESONIDE [Concomitant]
  3. MONTELUKAST SODIUM [Concomitant]
  4. ALBUTEROL [Concomitant]

REACTIONS (3)
  - Maternal drugs affecting foetus [None]
  - Caesarean section [None]
  - Prolonged labour [None]
